FAERS Safety Report 5303412-7 (Version None)
Quarter: 2007Q2

REPORT INFORMATION
  Report Type: 
  Country: None (occurrence: None)
  Receive Date: 20070420
  Receipt Date: 20070412
  Transmission Date: 20071010
  Serious: Yes (Hospitalization)
  Sender: FDA-Public Use
  Company Number: TW-ROCHE-492900

PATIENT

DRUGS (1)
  1. PEGASYS [Suspect]
     Indication: HEPATITIS
     Dosage: STOP DATE REPORTED AS 2007.
     Route: 065

REACTIONS (1)
  - HAEMOLYTIC ANAEMIA [None]
